FAERS Safety Report 25473454 (Version 1)
Quarter: 2025Q2

REPORT INFORMATION
  Report Type: Spontaneous
  Country: US (occurrence: None)
  Receive Date: 20250623
  Receipt Date: 20250623
  Transmission Date: 20250717
  Serious: Yes (Hospitalization, Disabling)
  Sender: FDA-CTU
  Company Number: None

PATIENT
  Age: 67 Year
  Sex: Male
  Weight: 92.25 kg

DRUGS (11)
  1. GABAPENTIN [Suspect]
     Active Substance: GABAPENTIN
     Indication: Pain in extremity
     Dosage: TWICE A DAY ORAL ?
     Route: 048
     Dates: start: 20241029, end: 20250530
  2. GABAPENTIN [Suspect]
     Active Substance: GABAPENTIN
  3. glipizide10mg, [Concomitant]
  4. amlodipine, [Concomitant]
  5. chlorlidone 25mg, [Concomitant]
  6. albuteral inhaler, [Concomitant]
  7. losartan, [Concomitant]
  8. metformin500mg, [Concomitant]
  9. ropinirole 1mg, [Concomitant]
  10. allergy med [Concomitant]
  11. CLARITIN [Concomitant]
     Active Substance: LORATADINE

REACTIONS (8)
  - Memory impairment [None]
  - Gait disturbance [None]
  - Dyspnoea [None]
  - Insomnia [None]
  - Somnolence [None]
  - Dizziness [None]
  - Nausea [None]
  - Coordination abnormal [None]

NARRATIVE: CASE EVENT DATE: 20241029
